FAERS Safety Report 12797734 (Version 3)
Quarter: 2017Q3

REPORT INFORMATION
  Report Type: Report from Study
  Country: US (occurrence: US)
  Receive Date: 20160930
  Receipt Date: 20170828
  Transmission Date: 20171127
  Serious: Yes (Other)
  Sender: FDA-Public Use
  Company Number: PHEH2016US025093

PATIENT
  Age: 50 Year
  Sex: Female

DRUGS (1)
  1. GILENYA [Suspect]
     Active Substance: FINGOLIMOD HYDROCHLORIDE
     Indication: PRODUCT USED FOR UNKNOWN INDICATION
     Dosage: UNK
     Route: 048
     Dates: start: 20110201

REACTIONS (13)
  - Fatigue [Unknown]
  - Malaise [Unknown]
  - Swelling [Unknown]
  - Ear infection [Unknown]
  - Sinusitis [Unknown]
  - Throat irritation [Unknown]
  - Oropharyngeal pain [Unknown]
  - Abdominal pain upper [Unknown]
  - Tooth disorder [Unknown]
  - Upper respiratory tract infection [Unknown]
  - Pharyngeal abscess [Unknown]
  - Contusion [Unknown]
  - Infection [Unknown]

NARRATIVE: CASE EVENT DATE: 20170731
